FAERS Safety Report 6335920-4 (Version None)
Quarter: 2009Q3

REPORT INFORMATION
  Report Type: 
  Country: None (occurrence: None)
  Receive Date: 20090901
  Receipt Date: 20090824
  Transmission Date: 20100115
  Serious: Yes (Other)
  Sender: FDA-Public Use
  Company Number: US-WYE-H10702209

PATIENT
  Sex: Female
  Weight: 47.67 kg

DRUGS (3)
  1. PRISTIQ [Suspect]
     Indication: DEPRESSION
     Route: 048
     Dates: start: 20090601
  2. AMBIEN [Concomitant]
     Dosage: UNKNOWN
     Dates: start: 20080101
  3. TOPAMAX [Concomitant]
     Dosage: UNKNOWN
     Dates: start: 20070101

REACTIONS (10)
  - CONDITION AGGRAVATED [None]
  - CONFUSIONAL STATE [None]
  - DEHYDRATION [None]
  - DIZZINESS [None]
  - FATIGUE [None]
  - HYPERHIDROSIS [None]
  - MEMORY IMPAIRMENT [None]
  - MIGRAINE [None]
  - NAUSEA [None]
  - SOMNOLENCE [None]
